FAERS Safety Report 7725794-9 (Version None)
Quarter: 2011Q3

REPORT INFORMATION
  Report Type: 
  Country: None (occurrence: None)
  Receive Date: 20110902
  Receipt Date: 20110830
  Transmission Date: 20111222
  Serious: Yes (Hospitalization)
  Sender: FDA-Public Use
  Company Number: DE-BRISTOL-MYERS SQUIBB COMPANY-16018574

PATIENT

DRUGS (1)
  1. IPILIMUMAB [Suspect]
     Dosage: INF.
     Dates: start: 20110823

REACTIONS (1)
  - EPILEPSY [None]
